FAERS Safety Report 4904705-5 (Version None)
Quarter: 2006Q1

REPORT INFORMATION
  Report Type: 
  Country: None (occurrence: None)
  Receive Date: 20060208
  Receipt Date: 20050923
  Transmission Date: 20060701
  Serious: No
  Sender: FDA-Public Use
  Company Number: US-GLAXOSMITHKLINE-A0575725A

PATIENT
  Age: 56 Year
  Sex: Female

DRUGS (7)
  1. PAXIL [Suspect]
     Dosage: 40MG PER DAY
     Route: 048
  2. LIPITOR [Concomitant]
  3. FEMARA [Concomitant]
     Route: 065
  4. ZOMETA [Concomitant]
  5. CLARINEX [Concomitant]
  6. CALCIUM GLUCONATE [Concomitant]
  7. VITAMIN D [Concomitant]

REACTIONS (4)
  - DIZZINESS [None]
  - DRUG WITHDRAWAL SYNDROME [None]
  - TINNITUS [None]
  - VOMITING [None]
